FAERS Safety Report 9840221 (Version 5)
Quarter: 2014Q1

REPORT INFORMATION
  Report Type: Spontaneous
  Country: US (occurrence: US)
  Receive Date: 20140124
  Receipt Date: 20140212
  Transmission Date: 20141002
  Serious: Yes (Death, Hospitalization, Other)
  Sender: FDA-Public Use
  Company Number: US-JNJFOC-20140114267

PATIENT
  Age: 9 Decade
  Sex: Female

DRUGS (1)
  1. XARELTO [Suspect]
     Indication: DEEP VEIN THROMBOSIS
     Dosage: STOPPED IN JAN-2014
     Route: 048
     Dates: start: 2013

REACTIONS (1)
  - Cerebral haemorrhage [Fatal]
